FAERS Safety Report 7201651-1 (Version None)
Quarter: 2010Q4

REPORT INFORMATION
  Report Type: 
  Country: None (occurrence: None)
  Receive Date: 20101216
  Receipt Date: 20101203
  Transmission Date: 20110411
  Serious: Yes (Disabling)
  Sender: FDA-Public Use
  Company Number: 772832

PATIENT
  Sex: Female

DRUGS (1)
  1. MARCAINE [Suspect]
     Indication: PAIN MANAGEMENT
     Dosage: INTRA-ARTICULAR
     Route: 014
     Dates: start: 20060419, end: 20090421

REACTIONS (13)
  - ARTHROPATHY [None]
  - ASTHENIA [None]
  - BONE CYST [None]
  - BURSITIS [None]
  - CHONDROLYSIS [None]
  - CONDITION AGGRAVATED [None]
  - EXOSTOSIS [None]
  - INFUSION SITE INDURATION [None]
  - JOINT RANGE OF MOTION DECREASED [None]
  - MUSCULOSKELETAL PAIN [None]
  - MUSCULOSKELETAL STIFFNESS [None]
  - ROTATOR CUFF SYNDROME [None]
  - SENSORY DISTURBANCE [None]
